FAERS Safety Report 19012371 (Version 7)
Quarter: 2021Q4

REPORT INFORMATION
  Report Type: Report from Study
  Country: CO (occurrence: CO)
  Receive Date: 20210316
  Receipt Date: 20211021
  Transmission Date: 20220303
  Serious: Yes (Hospitalization, Other)
  Sender: FDA-Public Use
  Company Number: CO-ASTELLAS-2021US009263

PATIENT
  Age: 50 Year
  Sex: Female

DRUGS (14)
  1. TACROLIMUS [Suspect]
     Active Substance: TACROLIMUS
     Indication: Renal transplant
     Route: 048
     Dates: start: 19970924
  2. TACROLIMUS [Suspect]
     Active Substance: TACROLIMUS
     Dosage: 7 MG (1 CAPSULE OF 5 MG AND 2 CAPSULES OF 1 MG)
     Route: 048
     Dates: start: 20110202
  3. TACROLIMUS [Suspect]
     Active Substance: TACROLIMUS
     Dosage: 9 MG (1 CAPSULE OF 5MG AND 4 CAPSULES OF 1 MG), ONCE DAILY
     Route: 048
     Dates: start: 20210202, end: 20210426
  4. TACROLIMUS [Suspect]
     Active Substance: TACROLIMUS
     Dosage: 10 MG (2 CAPSULES OF 5 MG), ONCE DAILY
     Route: 048
     Dates: start: 20210427
  5. TACROLIMUS [Suspect]
     Active Substance: TACROLIMUS
     Dosage: 9 MG (1 CAPSULE OF 5MG AND 4 CAPSULES OF 1 MG), ONCE DAILY
     Route: 048
     Dates: start: 2021
  6. MYCOPHENOLIC ACID [Suspect]
     Active Substance: MYCOPHENOLIC ACID
     Indication: Product used for unknown indication
     Route: 065
  7. FUROSEMIDE [Suspect]
     Active Substance: FUROSEMIDE
     Indication: Product used for unknown indication
     Dosage: UNK UNK, ONCE DAILY (EVERY 24 HOURS)
     Route: 065
  8. PREDNISOLONE [Concomitant]
     Active Substance: PREDNISOLONE
     Indication: Product used for unknown indication
     Route: 065
  9. NIFEDIPINE [Concomitant]
     Active Substance: NIFEDIPINE
     Indication: Product used for unknown indication
     Route: 065
  10. ENALAPRIL [Concomitant]
     Active Substance: ENALAPRIL
     Indication: Hypertension
     Route: 065
  11. ESOMEPRAZOLE. [Concomitant]
     Active Substance: ESOMEPRAZOLE MAGNESIUM
     Indication: Product used for unknown indication
     Dosage: UNK UNK, UNKNOWN FREQ.
     Route: 065
  12. LEVOTHYROXINE [Concomitant]
     Active Substance: LEVOTHYROXINE
     Indication: Product used for unknown indication
     Route: 065
  13. PREGABALIN [Concomitant]
     Active Substance: PREGABALIN
     Indication: Anxiety disorder
     Dosage: 75 MG AND 100 MG, UNKNOWN FREQ.
     Route: 065
  14. CLONAZEPAM [Concomitant]
     Active Substance: CLONAZEPAM
     Indication: Product used for unknown indication
     Dosage: 6 DROPS AT 8 AM, 6 DROPS AT 2 PM AND 12 DROPS AT NIGHT CLOZAPINE AT NIGHT, UNKNOWN FREQ.
     Route: 065

REACTIONS (29)
  - Contusion [Recovering/Resolving]
  - Proteinuria [Not Recovered/Not Resolved]
  - Inflammation [Recovered/Resolved]
  - Blood sodium decreased [Recovered/Resolved]
  - Fatigue [Recovering/Resolving]
  - Kidney transplant rejection [Recovering/Resolving]
  - Anxiety [Not Recovered/Not Resolved]
  - Immunosuppressant drug level decreased [Recovering/Resolving]
  - Asthenia [Unknown]
  - Muscle spasms [Unknown]
  - Inflammation [Recovering/Resolving]
  - Peripheral swelling [Recovering/Resolving]
  - Accident [Unknown]
  - Fall [Unknown]
  - Post-traumatic headache [Recovering/Resolving]
  - Loss of consciousness [Recovering/Resolving]
  - Syncope [Recovering/Resolving]
  - Weight increased [Not Recovered/Not Resolved]
  - Rash [Not Recovered/Not Resolved]
  - Fluid retention [Not Recovered/Not Resolved]
  - Headache [Not Recovered/Not Resolved]
  - Proteinuria [Recovering/Resolving]
  - Irritable bowel syndrome [Recovering/Resolving]
  - Colitis [Recovering/Resolving]
  - Dyspepsia [Recovering/Resolving]
  - Arthralgia [Recovering/Resolving]
  - Glucose tolerance impaired [Recovering/Resolving]
  - Diarrhoea [Recovering/Resolving]
  - Weight decreased [Recovering/Resolving]

NARRATIVE: CASE EVENT DATE: 20060101
